FAERS Safety Report 8871381 (Version 1)
Quarter: 2012Q4

REPORT INFORMATION
  Report Type: 
  Country: DE (occurrence: CA)
  Receive Date: 20121029
  Receipt Date: 20121029
  Transmission Date: 20130627
  Serious: Yes (Hospitalization, Other)
  Sender: FDA-Public Use
  Company Number: CA-FRI-1000039799

PATIENT
  Sex: Female

DRUGS (1)
  1. ROFLUMILAST [Suspect]
     Indication: CHRONIC OBSTRUCTIVE PULMONARY DISEASE
     Dosage: 500 mcg
     Route: 048
     Dates: start: 201202

REACTIONS (5)
  - Coxsackie viral infection [Recovering/Resolving]
  - Herpes zoster [Recovering/Resolving]
  - Upper limb fracture [Recovering/Resolving]
  - Laceration [Recovering/Resolving]
  - Wound haemorrhage [Recovering/Resolving]
